FAERS Safety Report 16387011 (Version 2)
Quarter: 2019Q2

REPORT INFORMATION
  Report Type: Spontaneous
  Country: JP (occurrence: JP)
  Receive Date: 20190604
  Receipt Date: 20190610
  Transmission Date: 20190711
  Serious: Yes (Life-Threatening, Hospitalization, Disabling, Other)
  Sender: FDA-Public Use
  Company Number: JP-SUNPHARMA-2019R1-202711AA

PATIENT
  Age: 49 Year
  Sex: Female

DRUGS (3)
  1. PURSENNID [SENNOSIDE A+B CALCIUM] [Suspect]
     Active Substance: SENNOSIDES A AND B
     Indication: PRODUCT USED FOR UNKNOWN INDICATION
     Dosage: 780 MILLIGRAM,UNK
     Route: 048
  2. MIRTAZAPINE. [Suspect]
     Active Substance: MIRTAZAPINE
     Indication: PRODUCT USED FOR UNKNOWN INDICATION
     Dosage: 1950 MILLIGRAM, UNK
     Route: 048
  3. BORIC ACID [Suspect]
     Active Substance: BORIC ACID
     Indication: PRODUCT USED FOR UNKNOWN INDICATION
     Dosage: UNKNOWN
     Route: 048

REACTIONS (25)
  - Acute kidney injury [Not Recovered/Not Resolved]
  - Peripheral ischaemia [Recovered/Resolved with Sequelae]
  - Ulcerative keratitis [Recovering/Resolving]
  - Alopecia [Unknown]
  - Altered state of consciousness [Recovered/Resolved]
  - Arrhythmia [Recovering/Resolving]
  - Mechanical ventilation [Unknown]
  - Erythema [Recovering/Resolving]
  - Ejection fraction decreased [Recovering/Resolving]
  - Nuclear magnetic resonance imaging brain abnormal [Recovering/Resolving]
  - Pulseless electrical activity [Recovering/Resolving]
  - Anuria [Recovering/Resolving]
  - Leg amputation [Recovering/Resolving]
  - Cardiac arrest [Recovering/Resolving]
  - Atrial fibrillation [Recovering/Resolving]
  - Aspiration [Recovering/Resolving]
  - Angina unstable [Recovering/Resolving]
  - Ventricular hypokinesia [Recovering/Resolving]
  - Lung consolidation [Recovering/Resolving]
  - Loss of consciousness [Recovered/Resolved]
  - Tachycardia [Recovering/Resolving]
  - Coma [Recovered/Resolved]
  - Cerebral ischaemia [Recovering/Resolving]
  - Necrosis [Recovering/Resolving]
  - Walking disability [Recovering/Resolving]
